FAERS Safety Report 19307842 (Version 2)
Quarter: 2021Q4

REPORT INFORMATION
  Report Type: Spontaneous
  Country: US (occurrence: US)
  Receive Date: 20210525
  Receipt Date: 20211228
  Transmission Date: 20220304
  Serious: Yes (Other)
  Sender: FDA-Public Use
  Company Number: US-PURDUE-USA-2021-0239735

PATIENT
  Sex: Female
  Weight: 85.714 kg

DRUGS (12)
  1. OXYCONTIN [Interacting]
     Active Substance: OXYCODONE HYDROCHLORIDE
     Indication: Pain
     Dosage: 40 MG, BID
     Route: 048
     Dates: start: 20140529
  2. OXYCONTIN [Interacting]
     Active Substance: OXYCODONE HYDROCHLORIDE
     Dosage: 60 MG, DAILY
     Route: 048
  3. MS CONTIN [Interacting]
     Active Substance: MORPHINE SULFATE
     Indication: Pain
     Dosage: 15 MG, TID
     Route: 048
  4. OXYCODONE HYDROCHLORIDE [Interacting]
     Active Substance: OXYCODONE HYDROCHLORIDE
     Indication: Pain
     Dosage: 20 MG, TID
     Route: 048
     Dates: start: 20140612
  5. OXYCODONE HYDROCHLORIDE [Interacting]
     Active Substance: OXYCODONE HYDROCHLORIDE
     Dosage: 10 MG, QID
     Route: 048
  6. OXYCODONE HYDROCHLORIDE [Interacting]
     Active Substance: OXYCODONE HYDROCHLORIDE
     Indication: Pain
     Dosage: 20 MG
     Route: 048
  7. MORPHINE SULFATE [Interacting]
     Active Substance: MORPHINE SULFATE
     Indication: Pain
     Dosage: 15 MG
     Route: 048
  8. ACETAMINOPHEN\OXYCODONE HYDROCHLORIDE [Interacting]
     Active Substance: ACETAMINOPHEN\OXYCODONE HYDROCHLORIDE
     Indication: Pain
     Dosage: 10-325 MG
     Route: 048
  9. HYDROCODONE BITARTRATE AND ACETAMINOPHEN [Interacting]
     Active Substance: ACETAMINOPHEN\HYDROCODONE BITARTRATE
     Indication: Pain
     Dosage: 7.5-325 MG
     Route: 048
  10. MORPHINE SULFATE [Suspect]
     Active Substance: MORPHINE SULFATE
     Indication: Product used for unknown indication
     Dosage: UNKNOWN
     Route: 065
  11. NORCO [Interacting]
     Active Substance: ACETAMINOPHEN\HYDROCODONE BITARTRATE
     Indication: Pain
     Dosage: UNKNOWN DOSE
     Route: 065
  12. LORAZEPAM [Interacting]
     Active Substance: LORAZEPAM
     Indication: Product used for unknown indication
     Dosage: 1 MG
     Route: 065

REACTIONS (16)
  - Drug dependence [Unknown]
  - Overdose [Unknown]
  - Scar [Unknown]
  - Nausea [Unknown]
  - Constipation [Unknown]
  - Diarrhoea [Unknown]
  - Abdominal distension [Unknown]
  - Pain [Unknown]
  - Anal fissure [Unknown]
  - General physical health deterioration [Unknown]
  - Mental disorder [Unknown]
  - Emotional distress [Unknown]
  - Drug tolerance [Unknown]
  - Anxiety [Unknown]
  - Drug withdrawal syndrome [Unknown]
  - Drug interaction [Unknown]
